FAERS Safety Report 19108249 (Version 1)
Quarter: 2021Q2

REPORT INFORMATION
  Report Type: Spontaneous
  Country: CN (occurrence: CN)
  Receive Date: 20210408
  Receipt Date: 20210408
  Transmission Date: 20210717
  Serious: Yes (Life-Threatening, Other)
  Sender: FDA-Public Use
  Company Number: CN-ELI_LILLY_AND_COMPANY-CN202104001597

PATIENT
  Age: 18 Year
  Sex: Male

DRUGS (5)
  1. OLANZAPINE. [Suspect]
     Active Substance: OLANZAPINE
     Indication: MENTAL DISORDER
     Dosage: UNK, UNKNOWN
     Route: 065
  2. OXCARBAZEPINE. [Interacting]
     Active Substance: OXCARBAZEPINE
     Indication: SCHIZOPHRENIA
     Dosage: 0.3 G, BID
     Route: 065
  3. OXCARBAZEPINE. [Interacting]
     Active Substance: OXCARBAZEPINE
     Dosage: 0.6 G, TID
     Route: 065
  4. OLANZAPINE. [Interacting]
     Active Substance: OLANZAPINE
     Dosage: 10 MG, BID
     Route: 048
  5. OLANZAPINE. [Interacting]
     Active Substance: OLANZAPINE
     Indication: SCHIZOPHRENIA
     Dosage: 5 MG, BID
     Route: 048

REACTIONS (35)
  - Drug interaction [Unknown]
  - Acne [Unknown]
  - Rash papular [Recovered/Resolved]
  - Pruritus [Unknown]
  - Mouth ulceration [Unknown]
  - Drug reaction with eosinophilia and systemic symptoms [Recovered/Resolved]
  - Ocular hyperaemia [Unknown]
  - White blood cell count increased [Recovered/Resolved]
  - Eosinophil count abnormal [Unknown]
  - C-reactive protein abnormal [Unknown]
  - Blood pressure increased [Recovered/Resolved]
  - Erythema [Recovering/Resolving]
  - Pruritus [Unknown]
  - Pyrexia [Recovered/Resolved]
  - Rash [Recovered/Resolved]
  - Pruritus [Unknown]
  - Rash macular [Recovered/Resolved]
  - Alpha hydroxybutyrate dehydrogenase increased [Unknown]
  - Asthenia [Unknown]
  - Tonsillitis [Unknown]
  - Skin exfoliation [Unknown]
  - Pyrexia [Recovered/Resolved]
  - Pharyngeal erythema [Unknown]
  - White blood cell count increased [Recovered/Resolved]
  - Blood creatine phosphokinase abnormal [Unknown]
  - Chills [Unknown]
  - Erythema [Recovering/Resolving]
  - Folliculitis [Unknown]
  - Neutrophil count abnormal [Unknown]
  - Swelling face [Recovered/Resolved]
  - Erythema [Unknown]
  - Skin discharge [Unknown]
  - Blood lactate dehydrogenase increased [Unknown]
  - White blood cell count increased [Recovered/Resolved]
  - Oedema [Unknown]

NARRATIVE: CASE EVENT DATE: 20190324
